FAERS Safety Report 10783757 (Version 1)
Quarter: 2015Q1

REPORT INFORMATION
  Report Type: Spontaneous
  Country: US (occurrence: US)
  Receive Date: 20150210
  Receipt Date: 20150210
  Transmission Date: 20150721
  Serious: Yes (Hospitalization)
  Sender: FDA-Public Use
  Company Number: US-ABBVIE-15P-163-1345424-00

PATIENT
  Sex: Male

DRUGS (2)
  1. DEPO-TESTOSTERONE [Concomitant]
     Active Substance: TESTOSTERONE CYPIONATE
     Indication: BLOOD TESTOSTERONE DECREASED
  2. ANDROGEL [Suspect]
     Active Substance: TESTOSTERONE
     Indication: BLOOD TESTOSTERONE DECREASED
     Route: 065
     Dates: start: 2006, end: 2008

REACTIONS (7)
  - Cardiovascular disorder [Unknown]
  - Anhedonia [Unknown]
  - Fear [Unknown]
  - Economic problem [Unknown]
  - Impaired work ability [Unknown]
  - Myocardial infarction [Unknown]
  - Social problem [Unknown]

NARRATIVE: CASE EVENT DATE: 20070328
